FAERS Safety Report 16210447 (Version 1)
Quarter: 2019Q2

REPORT INFORMATION
  Report Type: Spontaneous
  Country: US (occurrence: US)
  Receive Date: 20190313
  Receipt Date: 20190313
  Transmission Date: 20190711
  Serious: Yes (Hospitalization)
  Sender: FDA-Public Use
  Company Number: None

PATIENT
  Age: 79 Year
  Sex: Male
  Weight: 64.86 kg

DRUGS (2)
  1. MINOXIDIL 2.5MG [Suspect]
     Active Substance: MINOXIDIL
     Indication: HYPERTENSION
     Dosage: ?          OTHER FREQUENCY:AM;?
     Route: 048
  2. MINOXIDIL 2.5MG [Suspect]
     Active Substance: MINOXIDIL
     Dosage: ?          OTHER FREQUENCY:PM;?
     Route: 048

REACTIONS (13)
  - Dyspnoea [None]
  - Pulmonary oedema [None]
  - Oedema peripheral [None]
  - Productive cough [None]
  - Cardiac disorder [None]
  - Weight decreased [None]
  - Haematochezia [None]
  - Anaemia [None]
  - Wheezing [None]
  - Gait disturbance [None]
  - Angina pectoris [None]
  - Hypertension [None]
  - Faeces discoloured [None]

NARRATIVE: CASE EVENT DATE: 20190115
